FAERS Safety Report 4462067-4 (Version None)
Quarter: 2004Q3

REPORT INFORMATION
  Report Type: 
  Country: None (occurrence: None)
  Receive Date: 20040927
  Receipt Date: 20040927
  Transmission Date: 20050211
  Serious: Yes (Hospitalization)
  Sender: FDA-Public Use
  Company Number: None

PATIENT
  Age: 57 Year
  Sex: Female
  Weight: 96 kg

DRUGS (1)
  1. LINEZOLID  600MG IV [Suspect]
     Indication: PNEUMONIA
     Dosage: 600MG Q12H IV
     Route: 042
     Dates: start: 20040904, end: 20040914

REACTIONS (1)
  - PLATELET COUNT DECREASED [None]
